FAERS Safety Report 6053236-0 (Version None)
Quarter: 2009Q1

REPORT INFORMATION
  Report Type: 
  Country: None (occurrence: None)
  Receive Date: 20090123
  Receipt Date: 20090109
  Transmission Date: 20090719
  Serious: Yes (Other)
  Sender: FDA-Public Use
  Company Number: 2009S1000559

PATIENT
  Age: 70 Year
  Sex: Male

DRUGS (15)
  1. ALLOPURINOL [Suspect]
     Indication: HYPERURICAEMIA
     Dosage: 50 MG; DAILY; ORAL
     Route: 048
  2. ACETOLYT /00832101/ (ACETOLYT /00832101/) (2.5 MG) [Suspect]
     Indication: ANAEMIA
     Dosage: 2.5 GM; DAILY;ORAL
     Route: 048
     Dates: start: 20080720
  3. ASPIRIN [Suspect]
     Indication: PROPHYLAXIS
     Dosage: 100 MG; DAILY; ORAL
     Route: 048
     Dates: start: 20000101
  4. CARVEDILOL [Suspect]
     Indication: HYPERTENSION
     Dosage: 12.5 MG; DAILY;ORAL
     Route: 048
  5. DIGITOXIN INJ [Suspect]
     Indication: CARDIAC FAILURE
     Dosage: 0.007 MG;DAILY;ORAL
     Route: 048
     Dates: start: 20080625, end: 20080720
  6. ERBANTIL /00631801/ (URAPIDIL) (60 MG) [Suspect]
     Indication: HYPERTENSION
     Dosage: 60 MG;TWICE A DAY;ORAL
     Route: 048
  7. EINSALPHA (ALFACALCIDOL) (0.25 UG) [Suspect]
     Indication: HYPERPARATHYROIDISM
     Dosage: 0.25 UG;DAILY;ORAL
     Route: 048
     Dates: start: 20080520
  8. LOCOL (FLUVASTATIN SODIUM) (20 MG) [Suspect]
     Indication: HYPERCHOLESTEROLAEMIA
     Dosage: 20 MG;DAILY;ORAL
     Route: 048
  9. PANTOZOL (PANTOPRAZOLE) (40 MG) [Suspect]
     Indication: HELICOBACTER GASTRITIS
     Dosage: 40 MG;TWICE A DAY;ORAL
     Route: 048
  10. PLAVIX [Suspect]
     Indication: PROPHYLAXIS
     Dosage: 75 MG;DAILY;ORAL
     Route: 048
     Dates: start: 20060401, end: 20080720
  11. CLOPIDOGREL BISULFATE [Suspect]
     Indication: HYPERTENSION
     Dosage: 20 MG;3 TIMES A DAY; ORAL
     Route: 048
  12. XIPAMIDE (XIPAMIDE) (20 MG) [Suspect]
     Indication: HYPERTENSION
     Dosage: 20 MG;DAILY;ORAL
     Route: 048
     Dates: start: 20080625
  13. MOXONIDINE [Concomitant]
  14. NEORECORMON [Concomitant]
  15. ACTRAPHANE HM [Concomitant]

REACTIONS (7)
  - CARDIAC FAILURE [None]
  - CARDIOACTIVE DRUG LEVEL INCREASED [None]
  - DRUG INTERACTION [None]
  - GENERAL PHYSICAL CONDITION ABNORMAL [None]
  - INTERNATIONAL NORMALISED RATIO INCREASED [None]
  - LIVER FUNCTION TEST ABNORMAL [None]
  - RENAL FUNCTION TEST ABNORMAL [None]
